FAERS Safety Report 7579636-5 (Version None)
Quarter: 2011Q2

REPORT INFORMATION
  Report Type: 
  Country: None (occurrence: None)
  Receive Date: 20110629
  Receipt Date: 20110616
  Transmission Date: 20111010
  Serious: Yes (Other)
  Sender: FDA-Public Use
  Company Number: US-BAYER-2011-034116

PATIENT
  Age: 40 Year
  Sex: Female
  Weight: 79.819 kg

DRUGS (2)
  1. MIRENA [Suspect]
     Indication: CONTRACEPTION
     Dosage: 20 ?G, UNK
     Dates: start: 20110324, end: 20110415
  2. MIRENA [Suspect]

REACTIONS (1)
  - DEVICE DISLOCATION [None]
